FAERS Safety Report 25342108 (Version 2)
Quarter: 2025Q2

REPORT INFORMATION
  Report Type: Spontaneous
  Country: US (occurrence: US)
  Receive Date: 20250521
  Receipt Date: 20250522
  Transmission Date: 20250716
  Serious: Yes (Other)
  Sender: PFIZER
  Company Number: US-PFIZER INC-202500065724

PATIENT
  Age: 54 Year
  Sex: Female

DRUGS (1)
  1. VELSIPITY [Suspect]
     Active Substance: ETRASIMOD ARGININE
     Indication: Rectal haemorrhage
     Dosage: 2 MG, 1X/DAY
     Route: 048

REACTIONS (2)
  - Colitis [Unknown]
  - Off label use [Unknown]
